FAERS Safety Report 9607621 (Version 1)
Quarter: 2013Q4

REPORT INFORMATION
  Report Type: Spontaneous
  Country: GB (occurrence: GB)
  Receive Date: 20131009
  Receipt Date: 20131009
  Transmission Date: 20140711
  Serious: Yes (Other)
  Sender: FDA-Public Use
  Company Number: PHFR2013GB005626

PATIENT
  Sex: Male

DRUGS (2)
  1. CLOZARIL [Suspect]
     Indication: SCHIZOPHRENIA
     Dosage: UNK
     Dates: start: 20040528
  2. CLOZARIL [Suspect]
     Indication: PSYCHOTIC DISORDER
     Dosage: 250 MG, UNK
     Route: 048

REACTIONS (1)
  - Prostate cancer [Unknown]
